FAERS Safety Report 8555250-X (Version None)
Quarter: 2012Q3

REPORT INFORMATION
  Report Type: 
  Country: None (occurrence: None)
  Receive Date: 20120731
  Receipt Date: 20110914
  Transmission Date: 20120928
  Serious: No
  Sender: FDA-Public Use
  Company Number: US-ASTRAZENECA-2011SE51370

PATIENT
  Age: 85 Year
  Sex: Male

DRUGS (3)
  1. SEROQUEL [Suspect]
     Route: 048
  2. SEROQUEL [Suspect]
     Route: 048
  3. SEROQUEL [Suspect]
     Route: 048

REACTIONS (4)
  - PULMONARY VASCULAR DISORDER [None]
  - VASCULAR DEMENTIA [None]
  - MENTAL RETARDATION [None]
  - WRONG TECHNIQUE IN DRUG USAGE PROCESS [None]
